FAERS Safety Report 6114993-8 (Version None)
Quarter: 2009Q1

REPORT INFORMATION
  Report Type: 
  Country: None (occurrence: None)
  Receive Date: 20090313
  Receipt Date: 20090303
  Transmission Date: 20090719
  Serious: Yes (Other)
  Sender: FDA-Public Use
  Company Number: TR-JNJFOC-20090300943

PATIENT
  Age: 32 Year
  Sex: Female

DRUGS (1)
  1. INFLIXIMAB [Suspect]
     Indication: ANKYLOSING SPONDYLITIS
     Route: 042

REACTIONS (5)
  - ASCITES [None]
  - BACK PAIN [None]
  - LYMPH NODE TUBERCULOSIS [None]
  - PERITONITIS [None]
  - PULMONARY TUBERCULOSIS [None]
